FAERS Safety Report 9038954 (Version 1)
Quarter: 2013Q1

REPORT INFORMATION
  Report Type: Report from Study
  Country: US (occurrence: US)
  Receive Date: 20130129
  Receipt Date: 20130129
  Transmission Date: 20140127
  Serious: No
  Sender: FDA-Public Use
  Company Number: US-ABBOTT-12P-163-0933124-00

PATIENT
  Age: 58 Year
  Sex: Female
  Weight: 67.19 kg

DRUGS (4)
  1. HUMIRA 40 MG/0.8 ML PEN [Suspect]
     Indication: RHEUMATOID ARTHRITIS
     Dates: start: 200809
  2. DIGOXIN [Concomitant]
     Indication: HEART VALVE REPLACEMENT
  3. COUMADIN [Concomitant]
     Indication: HEART VALVE REPLACEMENT
  4. FUROSEMIDE [Concomitant]
     Indication: FLUID RETENTION

REACTIONS (1)
  - Bronchitis [Recovered/Resolved]
